FAERS Safety Report 4631633-5 (Version None)
Quarter: 2005Q2

REPORT INFORMATION
  Report Type: 
  Country: None (occurrence: None)
  Receive Date: 20050407
  Receipt Date: 20050323
  Transmission Date: 20051028
  Serious: Yes (Death, Hospitalization, Other)
  Sender: FDA-Public Use
  Company Number: A-CH2003-03560

PATIENT
  Age: 47 Year
  Sex: Male
  Weight: 55 kg

DRUGS (8)
  1. TRACLEER [Suspect]
     Indication: PULMONARY HYPERTENSION
     Dosage: 125 MG, BID, ORAL; 62.5 MG, BID, ORAL
     Route: 048
     Dates: start: 20020805, end: 20020901
  2. TRACLEER [Suspect]
     Indication: PULMONARY HYPERTENSION
     Dosage: 125 MG, BID, ORAL; 62.5 MG, BID, ORAL
     Route: 048
     Dates: start: 20020901
  3. FUROSEMIDE [Concomitant]
  4. PREVISCAN (FLUINDIONE) [Concomitant]
  5. OXYGEN (OXYGEN) [Concomitant]
  6. HYDREA [Concomitant]
  7. ALDACTONE [Concomitant]
  8. MERCAPTOPURINE [Concomitant]

REACTIONS (18)
  - ASCITES [None]
  - BLOOD ALKALINE PHOSPHATASE INCREASED [None]
  - BLOOD BILIRUBIN INCREASED [None]
  - BLOOD UREA INCREASED [None]
  - BONE PAIN [None]
  - CARDIAC FAILURE [None]
  - CATHETER RELATED INFECTION [None]
  - CONDITION AGGRAVATED [None]
  - HEPATOJUGULAR REFLUX [None]
  - HEPATOSPLENOMEGALY [None]
  - MALAISE [None]
  - OEDEMA PERIPHERAL [None]
  - PANCYTOPENIA [None]
  - PHLEBITIS [None]
  - PULMONARY HYPERTENSION [None]
  - RIGHT VENTRICULAR FAILURE [None]
  - STAPHYLOCOCCAL INFECTION [None]
  - VENOUS PRESSURE JUGULAR INCREASED [None]
